FAERS Safety Report 9392819 (Version 2)
Quarter: 2013Q3

REPORT INFORMATION
  Report Type: Spontaneous
  Country: CN (occurrence: CN)
  Receive Date: 20130710
  Receipt Date: 20130813
  Transmission Date: 20140515
  Serious: Yes (Other)
  Sender: FDA-Public Use
  Company Number: CN-ASTELLAS-2013JP007385

PATIENT
  Sex: Male

DRUGS (3)
  1. PROGRAF [Suspect]
     Indication: LIVER TRANSPLANT
     Dosage: 5 MG, UNKNOWN/D
     Route: 048
     Dates: end: 20130702
  2. PROGRAF [Suspect]
     Dosage: 2.0 MG, BID
     Route: 048
     Dates: start: 201306
  3. HORMONES [Concomitant]
     Indication: LIVER TRANSPLANT
     Dosage: UNK
     Route: 048
     Dates: start: 201306

REACTIONS (2)
  - Depressed level of consciousness [Recovered/Resolved]
  - Aggression [Recovered/Resolved]
